FAERS Safety Report 18484819 (Version 3)
Quarter: 2021Q1

REPORT INFORMATION
  Report Type: Spontaneous
  Country: JP (occurrence: JP)
  Receive Date: 20201110
  Receipt Date: 20210223
  Transmission Date: 20210419
  Serious: Yes (Hospitalization, Other)
  Sender: FDA-Public Use
  Company Number: JP-BRISTOL-MYERS SQUIBB COMPANY-BMS-2020-094390

PATIENT
  Age: 6 Decade
  Sex: Female

DRUGS (2)
  1. OPDIVO [Suspect]
     Active Substance: NIVOLUMAB
     Indication: MALIGNANT MELANOMA
     Dosage: 80 MILLIGRAM, Q3WK
     Route: 041
  2. YERVOY [Suspect]
     Active Substance: IPILIMUMAB
     Indication: MALIGNANT MELANOMA
     Dosage: 3 MILLIGRAM/KILOGRAM, Q3WK
     Route: 041

REACTIONS (5)
  - Altered state of consciousness [Not Recovered/Not Resolved]
  - Hepatic function abnormal [Recovering/Resolving]
  - Pyrexia [Not Recovered/Not Resolved]
  - Hypotension [Not Recovered/Not Resolved]
  - Electrolyte imbalance [Not Recovered/Not Resolved]

NARRATIVE: CASE EVENT DATE: 20201104
